FAERS Safety Report 23867463 (Version 1)
Quarter: 2024Q2

REPORT INFORMATION
  Report Type: Report from Study
  Country: US (occurrence: US)
  Receive Date: 20240517
  Receipt Date: 20240517
  Transmission Date: 20240716
  Serious: Yes (Hospitalization)
  Sender: FDA-Public Use
  Company Number: US-TAKEDA-2024TUS035015

PATIENT
  Sex: Male
  Weight: 105 kg

DRUGS (2)
  1. FRUQUINTINIB [Suspect]
     Active Substance: FRUQUINTINIB
     Indication: Colon cancer
     Dosage: 1 MILLIGRAM
     Route: 048
     Dates: start: 20240224
  2. FRUQUINTINIB [Suspect]
     Active Substance: FRUQUINTINIB
     Dosage: 1 MILLIGRAM
     Route: 048

REACTIONS (5)
  - Illness [Unknown]
  - Toxicity to various agents [Unknown]
  - Dry skin [Unknown]
  - Pruritus [Unknown]
  - Blood glucose increased [Unknown]
